FAERS Safety Report 7554720-0 (Version None)
Quarter: 2011Q2

REPORT INFORMATION
  Report Type: 
  Country: None (occurrence: None)
  Receive Date: 20110617
  Receipt Date: 20110607
  Transmission Date: 20111010
  Serious: Yes (Hospitalization, Other)
  Sender: FDA-Public Use
  Company Number: US-JNJFOC-20110603983

PATIENT
  Age: 20 Year
  Sex: Male

DRUGS (2)
  1. TOPIRAMATE [Suspect]
     Route: 048
  2. TOPIRAMATE [Suspect]
     Indication: PAIN IN EXTREMITY
     Route: 048

REACTIONS (4)
  - NEPHROLITHIASIS [None]
  - RENAL TUBULAR ACIDOSIS [None]
  - HYPOCITRATURIA [None]
  - OFF LABEL USE [None]
